FAERS Safety Report 7656266-8 (Version None)
Quarter: 2011Q3

REPORT INFORMATION
  Report Type: 
  Country: None (occurrence: None)
  Receive Date: 20110804
  Receipt Date: 20110727
  Transmission Date: 20111222
  Serious: Yes (Hospitalization, Other)
  Sender: FDA-Public Use
  Company Number: US-ELI_LILLY_AND_COMPANY-US201008003416

PATIENT
  Sex: Female
  Weight: 107 kg

DRUGS (8)
  1. HUMALOG [Concomitant]
  2. MULTI-VITAMIN [Concomitant]
  3. LANTUS [Concomitant]
     Dosage: UNK
  4. LISINOPRIL [Concomitant]
     Dosage: 10 MG, QD
     Route: 048
  5. HUMULIN R [Concomitant]
  6. BYETTA [Suspect]
     Indication: TYPE 2 DIABETES MELLITUS
     Dosage: 10 UG, BID
     Dates: start: 20070613, end: 20080925
  7. ZOCOR [Concomitant]
     Dosage: 10 MG, QD
     Route: 048
  8. GLUCOPHAGE [Concomitant]
     Dosage: 1000 MG, BID

REACTIONS (3)
  - PANCREATITIS ACUTE [None]
  - CHOLECYSTITIS CHRONIC [None]
  - OFF LABEL USE [None]
